FAERS Safety Report 5320550-3 (Version None)
Quarter: 2007Q2

REPORT INFORMATION
  Report Type: 
  Country: None (occurrence: None)
  Receive Date: 20070509
  Receipt Date: 20070427
  Transmission Date: 20071010
  Serious: Yes (Disabling, Other)
  Sender: FDA-Public Use
  Company Number: HU-PFIZER INC-2007027042

PATIENT
  Sex: Male
  Weight: 56 kg

DRUGS (9)
  1. PREGABALIN [Suspect]
     Indication: DIABETIC NEUROPATHY
     Route: 048
     Dates: start: 20070306, end: 20070314
  2. HUMULIN N [Concomitant]
     Route: 058
  3. HUMULIN 70/30 [Concomitant]
     Route: 058
  4. LISINOPRIL [Concomitant]
     Route: 048
  5. AMLODIPINE [Concomitant]
     Route: 048
  6. FUROSEMIDE [Concomitant]
     Route: 048
  7. KALIUM [Concomitant]
     Route: 048
  8. DIAPREL [Concomitant]
     Route: 048
  9. DOXIUM [Concomitant]
     Route: 048

REACTIONS (1)
  - DIABETIC RETINOPATHY [None]
